FAERS Safety Report 17760425 (Version 2)
Quarter: 2020Q2

REPORT INFORMATION
  Report Type: Spontaneous
  Country: IN (occurrence: IN)
  Receive Date: 20200508
  Receipt Date: 20200525
  Transmission Date: 20200714
  Serious: Yes (Hospitalization, Other)
  Sender: FDA-Public Use
  Company Number: IN-ACCORD-180750

PATIENT
  Age: 16 Year
  Sex: Female

DRUGS (1)
  1. TOPIRAMATE. [Suspect]
     Active Substance: TOPIRAMATE
     Dosage: GRADUALLY INCREASED THE DOSE TO 1000 MG/D (TOPIRAMATE 100-MG TABLETS 4-2-4)

REACTIONS (4)
  - Anorexia nervosa [Recovering/Resolving]
  - Intentional self-injury [Unknown]
  - Personality disorder [Recovering/Resolving]
  - Drug abuse [Unknown]
